FAERS Safety Report 12969515 (Version 4)
Quarter: 2019Q1

REPORT INFORMATION
  Report Type: Report from Study
  Country: US (occurrence: US)
  Receive Date: 20161123
  Receipt Date: 20190214
  Transmission Date: 20190417
  Serious: Yes (Death, Hospitalization)
  Sender: FDA-Public Use
  Company Number: US-ACTELION-A-NJ2016-138556

PATIENT
  Age: 81 Year
  Sex: Female

DRUGS (4)
  1. TRACLEER [Suspect]
     Active Substance: BOSENTAN
     Indication: PULMONARY HYPERTENSION
     Dosage: UNK
     Route: 048
     Dates: start: 20161211
  2. OPSUMIT [Suspect]
     Active Substance: MACITENTAN
     Indication: PULMONARY HYPERTENSION
     Dosage: 10 MG, QD
     Route: 048
     Dates: start: 20160128, end: 20161211
  3. REVATIO [Concomitant]
     Active Substance: SILDENAFIL CITRATE
  4. ADEMPAS [Suspect]
     Active Substance: RIOCIGUAT
     Indication: PULMONARY HYPERTENSION
     Dosage: UNK
     Route: 065

REACTIONS (22)
  - Pulmonary oedema [Fatal]
  - Respiratory failure [Fatal]
  - Asthenia [Fatal]
  - Dysphagia [Recovered/Resolved]
  - Acidosis [Fatal]
  - Nausea [Not Recovered/Not Resolved]
  - Diarrhoea [Not Recovered/Not Resolved]
  - Cough [Recovered/Resolved]
  - Anaemia [Fatal]
  - Mechanical ventilation [Not Recovered/Not Resolved]
  - Feeling abnormal [Unknown]
  - Fatigue [Fatal]
  - Retching [Fatal]
  - Confusional state [Not Recovered/Not Resolved]
  - Decreased appetite [Unknown]
  - Vomiting [Not Recovered/Not Resolved]
  - Pneumonia [Recovered/Resolved]
  - Haemoglobin [Fatal]
  - Dyspnoea [Recovered/Resolved]
  - General physical health deterioration [Unknown]
  - Oxygen saturation decreased [Not Recovered/Not Resolved]
  - Bone density decreased [Unknown]

NARRATIVE: CASE EVENT DATE: 20160607
